FAERS Safety Report 18398247 (Version 1)
Quarter: 2020Q4

REPORT INFORMATION
  Report Type: Spontaneous
  Country: US (occurrence: US)
  Receive Date: 20201019
  Receipt Date: 20201019
  Transmission Date: 20210114
  Serious: Yes (Other)
  Sender: FDA-Public Use
  Company Number: None

PATIENT
  Age: 47 Year
  Sex: Male
  Weight: 69.49 kg

DRUGS (1)
  1. BUPRENORPHINE NALOXONE 8-2MG [Suspect]
     Active Substance: BUPRENORPHINE\NALOXONE
     Indication: DRUG DEPENDENCE
     Dosage: ?          OTHER DOSE:8-2 MG 2 FILMS;?
     Route: 060
     Dates: start: 20200109, end: 20200428

REACTIONS (4)
  - Product substitution issue [None]
  - Constipation [None]
  - Haemorrhoids [None]
  - Drug ineffective [None]

NARRATIVE: CASE EVENT DATE: 20200414
